FAERS Safety Report 5393455-X (Version None)
Quarter: 2007Q3

REPORT INFORMATION
  Report Type: 
  Country: None (occurrence: None)
  Receive Date: 20070723
  Receipt Date: 20060602
  Transmission Date: 20080115
  Serious: No
  Sender: FDA-Public Use
  Company Number: A0607773A

PATIENT
  Age: 39 Year
  Sex: Female

DRUGS (4)
  1. AVANDIA [Suspect]
     Indication: DRUG USE FOR UNKNOWN INDICATION
     Dosage: 4MG PER DAY
     Route: 048
     Dates: start: 20051001, end: 20060529
  2. GLUCOVANCE [Concomitant]
  3. ZESTORETIC [Concomitant]
  4. TOPROL-XL [Concomitant]

REACTIONS (4)
  - FLUID RETENTION [None]
  - OEDEMA PERIPHERAL [None]
  - SKIN TIGHTNESS [None]
  - WEIGHT INCREASED [None]
